FAERS Safety Report 8828582 (Version 1)
Quarter: 2012Q4

REPORT INFORMATION
  Report Type: 
  Country: US (occurrence: US)
  Receive Date: 20121005
  Receipt Date: 20121005
  Transmission Date: 20130627
  Serious: Yes (Hospitalization)
  Sender: FDA-Public Use
  Company Number: US-BAYER-2012-102853

PATIENT
  Sex: Female
  Weight: 67 kg

DRUGS (13)
  1. BALSALAZIDE [Concomitant]
     Dosage: UNK
     Dates: start: 20100917, end: 20101007
  2. PREDNISONE [Concomitant]
     Dosage: 20 mg, UNK
     Route: 048
     Dates: start: 20100917
  3. PREDNISONE [Concomitant]
     Dosage: 5 mg, UNK
     Route: 048
     Dates: start: 20100917
  4. TRAMADOL HYDROCHLORIDE [Concomitant]
     Dosage: 50 mg, UNK
     Dates: start: 20100917
  5. LUNESTA [Concomitant]
     Dosage: 1 mg, UNK
     Route: 048
     Dates: start: 20100929
  6. COLAZAL [Concomitant]
     Dosage: 750 mg, UNK
     Route: 048
  7. FLAGYL [Concomitant]
     Dosage: 500 mg, UNK
  8. FERROUS SULFATE [Concomitant]
     Dosage: 325 mg, daily
  9. MESALAMINE [Concomitant]
     Dosage: 60 mg, daily
  10. YAZ [Suspect]
  11. MERCAPTOPURINE [Concomitant]
     Dosage: 50 mg, UNK
     Dates: start: 20100716, end: 20100917
  12. HALFLYTELY [BISACODYL,ELECTROLYTES NOS,MACROGOL 3350] [Concomitant]
     Dosage: UNK
     Dates: start: 20100818
  13. CANASA [Concomitant]
     Dosage: 1000 mg, UNK
     Dates: start: 20100901

REACTIONS (3)
  - Embolic stroke [None]
  - Pulmonary embolism [None]
  - Deep vein thrombosis [None]
